FAERS Safety Report 8950504 (Version 3)
Quarter: 2013Q1

REPORT INFORMATION
  Report Type: Spontaneous
  Country: TW (occurrence: TW)
  Receive Date: 20121207
  Receipt Date: 20130313
  Transmission Date: 20140127
  Serious: Yes (Death, Hospitalization)
  Sender: FDA-Public Use
  Company Number: TW-MPIJNJ-2012-08000

PATIENT
  Sex: 0

DRUGS (5)
  1. VELCADE [Suspect]
     Indication: PLASMA CELL MYELOMA
     Dosage: 1.9 MG, UNK
     Route: 042
     Dates: start: 201207
  2. ASPIRIN [Concomitant]
  3. CELECOXIB [Concomitant]
  4. DEXAMETHASONE [Concomitant]
  5. LENALIDOMIDE [Concomitant]

REACTIONS (4)
  - Death [Fatal]
  - Posterior reversible encephalopathy syndrome [Recovering/Resolving]
  - Leukopenia [Unknown]
  - Diarrhoea [Recovering/Resolving]
